FAERS Safety Report 6328239-9 (Version None)
Quarter: 2009Q3

REPORT INFORMATION
  Report Type: 
  Country: None (occurrence: None)
  Receive Date: 20090825
  Receipt Date: 20090303
  Transmission Date: 20100115
  Serious: No
  Sender: FDA-Public Use
  Company Number: US-ABBOTT-09P-163-0560694-00

PATIENT
  Sex: Female
  Weight: 115.77 kg

DRUGS (1)
  1. SYNTHROID [Suspect]
     Indication: HYPOTHYROIDISM
     Dosage: FORM: 100 MICROGRAMS
     Route: 048
     Dates: start: 20080601, end: 20090301

REACTIONS (7)
  - EYELID OEDEMA [None]
  - GALLBLADDER DISORDER [None]
  - LIP SWELLING [None]
  - PRURITUS [None]
  - RASH MACULAR [None]
  - SWOLLEN TONGUE [None]
  - URTICARIA [None]
